FAERS Safety Report 8530989-0 (Version None)
Quarter: 2012Q3

REPORT INFORMATION
  Report Type: 
  Country: None (occurrence: None)
  Receive Date: 20120711
  Receipt Date: 20120629
  Transmission Date: 20120928
  Serious: Yes (Other)
  Sender: FDA-Public Use
  Company Number: ENTC2011-0077

PATIENT
  Age: 65 Year
  Sex: Female

DRUGS (4)
  1. MADOPAR [Concomitant]
  2. AZILECT [Concomitant]
  3. REQUIP [Concomitant]
  4. STALEVO 50 [Suspect]
     Indication: PARKINSON'S DISEASE
     Dosage: 200/50/200 MG 4 TABLETS PER DAY
     Dates: start: 20100520

REACTIONS (3)
  - ANXIETY [None]
  - INSOMNIA [None]
  - PANIC ATTACK [None]
